FAERS Safety Report 6958424-4 (Version None)
Quarter: 2010Q3

REPORT INFORMATION
  Report Type: 
  Country: None (occurrence: None)
  Receive Date: 20100831
  Receipt Date: 20100824
  Transmission Date: 20110219
  Serious: Yes (Hospitalization)
  Sender: FDA-Public Use
  Company Number: BR-ROCHE-697433

PATIENT
  Sex: Female
  Weight: 58 kg

DRUGS (11)
  1. TOCILIZUMAB [Suspect]
     Indication: RHEUMATOID ARTHRITIS
     Dosage: DOSE REPORTED AS 1000 MG/ML, FORM REPORTED AS INFUSION
     Route: 042
     Dates: start: 20091001
  2. TOCILIZUMAB [Suspect]
     Route: 042
  3. TOCILIZUMAB [Suspect]
     Route: 042
     Dates: start: 20091015, end: 20100501
  4. PREDNISONE [Concomitant]
  5. AMITRIPTYLINE HCL [Concomitant]
  6. FRONTAL [Concomitant]
  7. CALTRATE [Concomitant]
  8. ASCORBIC ACID [Concomitant]
  9. INDOCIN [Concomitant]
  10. DIPYRONE [Concomitant]
  11. ALENDRONATE SODIUM [Concomitant]
     Dosage: DRUG REPORTED AS ALENDRONATE

REACTIONS (4)
  - ARTHRALGIA [None]
  - DRUG INEFFECTIVE [None]
  - HIATUS HERNIA [None]
  - PNEUMONIA [None]
